FAERS Safety Report 7215485-5 (Version None)
Quarter: 2011Q1

REPORT INFORMATION
  Report Type: 
  Country: None (occurrence: None)
  Receive Date: 20110107
  Receipt Date: 20110103
  Transmission Date: 20110831
  Serious: Yes (Life-Threatening, Hospitalization)
  Sender: FDA-Public Use
  Company Number: A0899760A

PATIENT
  Sex: Female
  Weight: 44 kg

DRUGS (1)
  1. ZYBAN [Suspect]
     Dosage: 150MG PER DAY
     Route: 065
     Dates: start: 20101207, end: 20101230

REACTIONS (19)
  - FEELING COLD [None]
  - ASTHENIA [None]
  - DIZZINESS [None]
  - HEADACHE [None]
  - LOSS OF CONSCIOUSNESS [None]
  - TINNITUS [None]
  - SOMNOLENCE [None]
  - FEELING HOT [None]
  - DYSPNOEA [None]
  - FINGER DEFORMITY [None]
  - HYPOGLYCAEMIA [None]
  - WEIGHT DECREASED [None]
  - INSOMNIA [None]
  - VOMITING [None]
  - BLOOD PRESSURE DECREASED [None]
  - SYNCOPE [None]
  - DECREASED APPETITE [None]
  - HYPERHIDROSIS [None]
  - PYREXIA [None]
